FAERS Safety Report 9392394 (Version 1)
Quarter: 2013Q3

REPORT INFORMATION
  Report Type: Spontaneous
  Country: US (occurrence: US)
  Receive Date: 20130710
  Receipt Date: 20130710
  Transmission Date: 20140515
  Serious: Yes (Hospitalization)
  Sender: FDA-Public Use
  Company Number: US-ASTRAZENECA-2013SE50177

PATIENT
  Age: 37 Year
  Sex: Male
  Weight: 76.2 kg

DRUGS (11)
  1. TOPROL XL [Suspect]
     Indication: HYPERTENSION
     Route: 048
     Dates: start: 1992, end: 20130628
  2. TOPROL XL [Suspect]
     Indication: HYPERTENSION
     Dosage: MORE THAN 50 MG TOPROL XL DAILY
     Route: 048
  3. METOPROLOL TARTRATE [Suspect]
     Route: 065
     Dates: start: 20130701
  4. OMEPRAZOLE [Suspect]
     Indication: GASTROOESOPHAGEAL REFLUX DISEASE
     Route: 048
     Dates: start: 1992
  5. CRESTOR [Suspect]
     Indication: BLOOD CHOLESTEROL INCREASED
     Route: 048
     Dates: start: 2006
  6. CRESTOR [Suspect]
     Indication: BLOOD CHOLESTEROL INCREASED
     Dosage: 2 TO 3 TIMES A WEEK
     Route: 048
  7. ZANTAC [Suspect]
     Route: 065
  8. PLAVIX [Suspect]
     Route: 065
  9. ASPRIN [Concomitant]
     Indication: MYOCARDIAL INFARCTION
     Route: 048
     Dates: start: 2006
  10. LOVAZA [Concomitant]
     Route: 048
  11. FLONASE [Concomitant]

REACTIONS (17)
  - Coronary artery occlusion [Recovered/Resolved]
  - Myocardial infarction [Recovered/Resolved]
  - Blood pressure increased [Not Recovered/Not Resolved]
  - Scar [Recovered/Resolved with Sequelae]
  - Barrett^s oesophagus [Not Recovered/Not Resolved]
  - Gastrooesophageal reflux disease [Not Recovered/Not Resolved]
  - Ulcer [Unknown]
  - Chest discomfort [Recovered/Resolved]
  - Agitation [Not Recovered/Not Resolved]
  - Urticaria [Recovered/Resolved]
  - Diarrhoea [Recovered/Resolved]
  - Vision blurred [Recovered/Resolved]
  - Dyspnoea [Recovered/Resolved]
  - Intentional drug misuse [Unknown]
  - Off label use [Unknown]
  - Drug dose omission [Not Recovered/Not Resolved]
  - Drug ineffective [Unknown]
